FAERS Safety Report 6059533-7 (Version None)
Quarter: 2009Q1

REPORT INFORMATION
  Report Type: 
  Country: None (occurrence: None)
  Receive Date: 20090130
  Receipt Date: 20090123
  Transmission Date: 20090719
  Serious: Yes (Hospitalization)
  Sender: FDA-Public Use
  Company Number: US-ASTRAZENECA-2009UW02037

PATIENT
  Age: 64 Year
  Sex: Male

DRUGS (2)
  1. CRESTOR [Suspect]
     Route: 048
     Dates: start: 20090102
  2. TOPROL-XL [Suspect]
     Route: 048
     Dates: start: 20090102

REACTIONS (1)
  - EXTRASYSTOLES [None]
